FAERS Safety Report 8559305-5 (Version None)
Quarter: 2012Q3

REPORT INFORMATION
  Report Type: 
  Country: None (occurrence: None)
  Receive Date: 20120802
  Receipt Date: 20120730
  Transmission Date: 20120928
  Serious: Yes (Other)
  Sender: FDA-Public Use
  Company Number: PHHY2012AU051153

PATIENT
  Age: 37 Year
  Sex: Female

DRUGS (2)
  1. PREDNISOLONE [Concomitant]
     Dosage: 30 MG DAILY
  2. CLOFAZIMINE [Suspect]
     Indication: NODULAR VASCULITIS
     Dosage: 100 MG, TID
     Route: 048
     Dates: start: 20060201

REACTIONS (8)
  - HISTIOCYTOSIS [None]
  - NECROSIS [None]
  - ABDOMINAL PAIN [None]
  - POST INFLAMMATORY PIGMENTATION CHANGE [None]
  - SKIN DISCOLOURATION [None]
  - XEROSIS [None]
  - GASTROINTESTINAL DISORDER [None]
  - MESENTERIC LYMPHADENOPATHY [None]
